FAERS Safety Report 10601370 (Version 1)
Quarter: 2014Q4

REPORT INFORMATION
  Report Type: Spontaneous
  Country: US (occurrence: None)
  Receive Date: 20141121
  Receipt Date: 20141121
  Transmission Date: 20150529
  Serious: Yes (Other)
  Sender: FDA-Public Use
  Company Number: None

PATIENT
  Age: 71 Year
  Sex: Female
  Weight: 118.2 kg

DRUGS (1)
  1. AFINITOR [Suspect]
     Active Substance: EVEROLIMUS
     Indication: OSTEOARTHRITIS
     Route: 048
     Dates: start: 20140930, end: 20141120

REACTIONS (1)
  - Disease progression [None]

NARRATIVE: CASE EVENT DATE: 20141120
